FAERS Safety Report 6334444-8 (Version None)
Quarter: 2009Q4

REPORT INFORMATION
  Report Type: 
  Country: None (occurrence: None)
  Receive Date: 20090827
  Receipt Date: 20090818
  Transmission Date: 20100525
  Serious: Yes (Hospitalization, Disabling)
  Sender: FDA-Public Use
  Company Number: 355738

PATIENT
  Age: 69 Year
  Sex: Male
  Weight: 89.9 kg

DRUGS (15)
  1. MIDAZOLAM HYDROCHLORIDE [Suspect]
     Indication: ANAESTHESIA
     Dosage: 10 MG BOLUS INTRAVENOUS; 3 MG BOLUS INTRAVENOUS
     Route: 040
     Dates: start: 20090731, end: 20090731
  2. MIDAZOLAM HYDROCHLORIDE [Suspect]
     Indication: ANAESTHESIA
     Dosage: 10 MG BOLUS INTRAVENOUS; 3 MG BOLUS INTRAVENOUS
     Route: 040
     Dates: start: 20090731, end: 20090731
  3. NICARDIPINE HYDROCHLORIDE [Suspect]
     Indication: HYPERTENSION
     Dosage: 1200 MCG, INTRAVENOUS; 2MG/HR; INTRAVENOUS
     Route: 042
     Dates: start: 20090731, end: 20090731
  4. NICARDIPINE HYDROCHLORIDE [Suspect]
     Indication: HYPERTENSION
     Dosage: 1200 MCG, INTRAVENOUS; 2MG/HR; INTRAVENOUS
     Route: 042
     Dates: start: 20090731, end: 20090731
  5. PHENYLEPHRINE [Suspect]
     Indication: HYPOTENSION
     Dosage: 50 MCG/MIN, INTRAVENOUS
     Route: 042
     Dates: start: 20090731, end: 20090731
  6. FENTANYL [Suspect]
     Indication: ANAESTHESIA
     Dosage: 500 MCG BOLUS INTRAVENOUS; 500 MCG BOLUS INTRAVENOUS; 500 MCG BOLUS INTRAVENOUS
     Route: 040
     Dates: start: 20090731, end: 20090731
  7. FENTANYL [Suspect]
     Indication: ANAESTHESIA
     Dosage: 500 MCG BOLUS INTRAVENOUS; 500 MCG BOLUS INTRAVENOUS; 500 MCG BOLUS INTRAVENOUS
     Route: 040
     Dates: start: 20090731, end: 20090731
  8. FENTANYL [Suspect]
     Indication: ANAESTHESIA
     Dosage: 500 MCG BOLUS INTRAVENOUS; 500 MCG BOLUS INTRAVENOUS; 500 MCG BOLUS INTRAVENOUS
     Route: 040
     Dates: start: 20090731, end: 20090731
  9. HYDROMOPHONE [Suspect]
     Indication: ANAESTHESIA
     Dosage: 2MG BOLUS INTRAVENOUS
     Route: 040
     Dates: start: 20090801, end: 20090801
  10. ALL OTHER THERAPEUTIC PRODUCTS [Suspect]
     Indication: DRUG USE FOR UNKNOWN INDICATION
     Dosage: 125 MCG BOLUS INTRAVENOUS; 250 MCG BOLUS INTRAVENOUS
     Route: 040
     Dates: start: 20090731, end: 20090731
  11. ALL OTHER THERAPEUTIC PRODUCTS [Suspect]
     Indication: DRUG USE FOR UNKNOWN INDICATION
     Dosage: 125 MCG BOLUS INTRAVENOUS; 250 MCG BOLUS INTRAVENOUS
     Route: 040
     Dates: start: 20090731, end: 20090731
  12. EPINEPHRINE [Suspect]
     Indication: HYPOTENSION
     Dosage: 2 MG/MINUTE, INTRAVENOUS
     Route: 042
     Dates: start: 20090731, end: 20090802
  13. INSULIN [Concomitant]
  14. CALCIUM CHLORIDE /00203801/ [Concomitant]
  15. SODIUM BICARBONATE IN PLASTIC CONTAINER [Concomitant]

REACTIONS (5)
  - APHASIA [None]
  - DELIRIUM [None]
  - ENCEPHALOPATHY [None]
  - POST PROCEDURAL COMPLICATION [None]
  - UNRESPONSIVE TO STIMULI [None]
